FAERS Safety Report 9552963 (Version 1)
Quarter: 2013Q2

REPORT INFORMATION
  Report Type: Spontaneous
  Country: US (occurrence: None)
  Receive Date: 20130517
  Receipt Date: 20130517
  Transmission Date: 20140414
  Serious: Yes (Hospitalization)
  Sender: FDA-Public Use
  Company Number: 2013PL000039

PATIENT
  Age: 5 Year
  Sex: Male
  Weight: 17.3 kg

DRUGS (6)
  1. IMURAN (AZATHIOPRINE) [Suspect]
     Indication: PRODUCT USED FOR UNKNOWN INDICATION
  2. REMICADE [Suspect]
     Indication: INFLAMMATORY BOWEL DISEASE
  3. DEXTRIN [Concomitant]
  4. MULTIVIT [Concomitant]
  5. LANSOPRAZOLE [Concomitant]
  6. PROBIOTICS [Concomitant]

REACTIONS (1)
  - Croup infectious [None]
